FAERS Safety Report 9492788 (Version 2)
Quarter: 2013Q3

REPORT INFORMATION
  Report Type: Spontaneous
  Country: US (occurrence: US)
  Receive Date: 20130830
  Receipt Date: 20130906
  Transmission Date: 20140515
  Serious: No
  Sender: FDA-Public Use
  Company Number: US-009507513-1308USA012201

PATIENT
  Age: 70 Year
  Sex: Female

DRUGS (2)
  1. ZIOPTAN [Suspect]
     Indication: PROPHYLAXIS
     Dosage: 1 GTT, HS, RIGHT EYE
     Route: 047
     Dates: start: 201202, end: 201308
  2. COMBIGAN [Concomitant]

REACTIONS (5)
  - Burning sensation [Recovered/Resolved]
  - Erythema [Recovered/Resolved]
  - Inflammation [Recovered/Resolved]
  - Drug dose omission [Unknown]
  - Off label use [Unknown]
